FAERS Safety Report 14448351 (Version 1)
Quarter: 2018Q1

REPORT INFORMATION
  Report Type: Spontaneous
  Country: US (occurrence: US)
  Receive Date: 20180126
  Receipt Date: 20180126
  Transmission Date: 20180509
  Serious: Yes (Hospitalization)
  Sender: FDA-Public Use
  Company Number: None

PATIENT
  Sex: Female

DRUGS (10)
  1. SINGULAIR [Concomitant]
     Active Substance: MONTELUKAST SODIUM
  2. LASIX [Concomitant]
     Active Substance: FUROSEMIDE
  3. LORAZEPAM. [Concomitant]
     Active Substance: LORAZEPAM
  4. SYNTHROID [Concomitant]
     Active Substance: LEVOTHYROXINE SODIUM
  5. XOLAIR [Suspect]
     Active Substance: OMALIZUMAB
     Indication: IDIOPATHIC URTICARIA
     Dosage: ?          OTHER FREQUENCY:Q 4 WEEKS;?
     Route: 058
     Dates: start: 20150708
  6. PREDNISONE. [Concomitant]
     Active Substance: PREDNISONE
  7. POTASSIUM [Concomitant]
     Active Substance: POTASSIUM
  8. BENADRYL [Concomitant]
     Active Substance: DIPHENHYDRAMINE HYDROCHLORIDE
  9. FLORASTOR [Concomitant]
     Active Substance: SACCHAROMYCES CEREVISIAE
  10. VITAMIN D [Concomitant]
     Active Substance: CHOLECALCIFEROL

REACTIONS (1)
  - Hospitalisation [None]
